FAERS Safety Report 8256036-6 (Version None)
Quarter: 2012Q2

REPORT INFORMATION
  Report Type: 
  Country: None (occurrence: None)
  Receive Date: 20120403
  Receipt Date: 20120330
  Transmission Date: 20120825
  Serious: Yes (Other)
  Sender: FDA-Public Use
  Company Number: US-JNJFOC-20120308046

PATIENT
  Age: 74 Year
  Sex: Male
  Weight: 62.14 kg

DRUGS (5)
  1. AVAPRO [Concomitant]
     Indication: HYPERTENSION
     Route: 065
     Dates: start: 20110101
  2. VITAMIN [Concomitant]
     Indication: ROUTINE HEALTH MAINTENANCE
     Route: 065
  3. FINASTERIDE [Concomitant]
     Indication: PROSTATIC DISORDER
     Route: 065
     Dates: start: 20100101
  4. AMLODIPINE BESYLATE [Concomitant]
     Indication: HYPERTENSION
     Route: 065
     Dates: start: 20110101
  5. LISTERINE TOOTH DEFENSE [Suspect]
     Indication: DENTAL DISORDER PROPHYLAXIS
     Dosage: SMALL AMOUNT, LESS THAN RECOMMENDED, 1-2 TIMES A DAY.
     Route: 048

REACTIONS (2)
  - OROPHARYNGEAL BLISTERING [None]
  - LIP BLISTER [None]
